FAERS Safety Report 16724951 (Version 3)
Quarter: 2019Q3

REPORT INFORMATION
  Report Type: Spontaneous
  Country: US (occurrence: US)
  Receive Date: 20190821
  Receipt Date: 20190927
  Transmission Date: 20191005
  Serious: Yes (Other)
  Sender: FDA-Public Use
  Company Number: US-PFIZER INC-2019357334

PATIENT
  Age: 49 Year
  Sex: Male
  Weight: 74.83 kg

DRUGS (2)
  1. VIAGRA [Suspect]
     Active Substance: SILDENAFIL CITRATE
     Indication: ERECTILE DYSFUNCTION
     Dosage: 500 MG, DAILY(100 MG SUPPOSED TO BE ONE A DAY I TRIED 5 IN ONE DAY)
     Dates: start: 20190801
  2. VIAGRA [Suspect]
     Active Substance: SILDENAFIL CITRATE
     Indication: PROSTATECTOMY
     Dosage: 4 DF, (TRIED 4 IN A ROW WITHIN A CERTAIN MATTER OF TIME, 45 MINUTES A PIECE)

REACTIONS (4)
  - Gait disturbance [Unknown]
  - Overdose [Unknown]
  - Visual brightness [Unknown]
  - Drug ineffective [Unknown]
